FAERS Safety Report 7386306-5 (Version None)
Quarter: 2011Q1

REPORT INFORMATION
  Report Type: 
  Country: None (occurrence: None)
  Receive Date: 20110331
  Receipt Date: 20110317
  Transmission Date: 20110831
  Serious: Yes (Other)
  Sender: FDA-Public Use
  Company Number: PHHY2011US16553

PATIENT
  Sex: Female

DRUGS (11)
  1. ATIVAN [Concomitant]
     Dosage: UNK UKN, PRN
  2. ASCORBIC ACID [Concomitant]
     Dosage: UNK UKN, UNK
  3. OXYBUTYNIN [Concomitant]
     Dosage: UNK UKN, UNK
  4. ADURIX [Concomitant]
     Dosage: UNK UKN, UNK
  5. GILENYA [Suspect]
     Indication: MULTIPLE SCLEROSIS
     Dosage: 0.5 MG, QD
     Route: 048
     Dates: start: 20101201
  6. PROVIGIL [Concomitant]
     Dosage: UNK UKN, UNK
  7. CYMBALTA [Concomitant]
     Dosage: UNK UKN, UNK
  8. GILENYA [Suspect]
     Dosage: 0.5 MG, QD
     Route: 048
     Dates: start: 20101201
  9. MULTI-VITAMIN [Concomitant]
     Dosage: UNK UKN, UNK
  10. 12 GRAIN LETICHIN [Concomitant]
     Dosage: UNK UKN, UNK
  11. NEURONTIN [Concomitant]
     Dosage: UNK UKN, UNK

REACTIONS (3)
  - ABNORMAL SENSATION IN EYE [None]
  - VISION BLURRED [None]
  - VISUAL ACUITY REDUCED [None]
